FAERS Safety Report 14825634 (Version 1)
Quarter: 2018Q2

REPORT INFORMATION
  Report Type: Spontaneous
  Country: FR (occurrence: FR)
  Receive Date: 20180430
  Receipt Date: 20180430
  Transmission Date: 20180711
  Serious: Yes (Other)
  Sender: FDA-Public Use
  Company Number: FR-MERCK KGAA-2046790

PATIENT
  Age: 73 Year
  Sex: Female

DRUGS (1)
  1. NOVOTHYROX [Suspect]
     Active Substance: LEVOTHYROXINE SODIUM
     Indication: PRODUCT USED FOR UNKNOWN INDICATION

REACTIONS (37)
  - Hypertension [None]
  - Dysstasia [None]
  - Blood glucose increased [None]
  - Suicidal ideation [None]
  - Dizziness [None]
  - Night sweats [None]
  - Ageusia [None]
  - Headache [None]
  - Bipolar disorder [None]
  - Visual impairment [None]
  - Apathy [None]
  - Haemoglobin decreased [None]
  - Asthenia [None]
  - Hypertonia [None]
  - Impaired driving ability [None]
  - Time perception altered [None]
  - Emotional distress [None]
  - Hot flush [None]
  - Weight decreased [None]
  - Amnesia [None]
  - Dermatitis [None]
  - Gait disturbance [None]
  - Blood uric acid increased [None]
  - Alanine aminotransferase increased [None]
  - Somnolence [None]
  - Nausea [None]
  - Social avoidant behaviour [None]
  - Decreased appetite [None]
  - Red blood cell sedimentation rate increased [None]
  - Nervousness [None]
  - Dementia [None]
  - Loss of personal independence in daily activities [None]
  - Feeling abnormal [None]
  - Haematocrit decreased [None]
  - Glycosylated haemoglobin increased [None]
  - Mood altered [None]
  - Diarrhoea [None]

NARRATIVE: CASE EVENT DATE: 201703
